FAERS Safety Report 7351226-9 (Version None)
Quarter: 2011Q1

REPORT INFORMATION
  Report Type: 
  Country: None (occurrence: None)
  Receive Date: 20110314
  Receipt Date: 20110308
  Transmission Date: 20110831
  Serious: Yes (Hospitalization, Other)
  Sender: FDA-Public Use
  Company Number: JP-GENENTECH-312518

PATIENT
  Sex: Male

DRUGS (16)
  1. CYCLOPHOSPHAMIDE [Concomitant]
     Indication: LYMPHOMA
     Dosage: 1100 MG, UNK
     Dates: start: 20110104
  2. PREDNISOLONE [Concomitant]
     Indication: LYMPHOMA
     Dosage: 100 MG, UNK
  3. POLARAMINE [Concomitant]
     Indication: PRODUCT USED FOR UNKNOWN INDICATION
     Dosage: 5 MG, UNK
  4. MANIDIPINE [Concomitant]
     Indication: PRODUCT USED FOR UNKNOWN INDICATION
  5. KYTRIL [Concomitant]
     Indication: PRODUCT USED FOR UNKNOWN INDICATION
     Dosage: 3 MG, UNK
  6. ONCOVIN [Concomitant]
     Indication: LYMPHOMA
     Dosage: 1 MG, UNK
  7. VINCRISTINE [Concomitant]
     Indication: LYMPHOMA
     Dosage: 2 MG, UNK
     Dates: start: 20110104
  8. RITUXIMAB [Suspect]
     Indication: LYMPHOMA
     Dosage: 580 MG, UNK
     Route: 042
     Dates: start: 20110106, end: 20110106
  9. TAKEPRON [Concomitant]
     Indication: PRODUCT USED FOR UNKNOWN INDICATION
     Dosage: 80 MG, UNK
  10. FAMOTIDINE [Concomitant]
     Indication: PRODUCT USED FOR UNKNOWN INDICATION
  11. MARZULENE S [Concomitant]
     Indication: PRODUCT USED FOR UNKNOWN INDICATION
  12. PREDONINE [Concomitant]
     Indication: LYMPHOMA
     Dosage: 50 MG, UNK
  13. ENDOXAN [Concomitant]
     Indication: LYMPHOMA
  14. THERARUBICIN [Concomitant]
     Indication: LYMPHOMA
     Dosage: 20 MG, UNK
  15. PIRARUBICIN [Concomitant]
     Indication: LYMPHOMA
     Dosage: 80 MG, UNK
     Dates: start: 20110104
  16. AMANTADINE HCL [Concomitant]
     Indication: PRODUCT USED FOR UNKNOWN INDICATION

REACTIONS (1)
  - PLEURAL EFFUSION [None]
